FAERS Safety Report 5629775-0 (Version None)
Quarter: 2008Q1

REPORT INFORMATION
  Report Type: 
  Country: None (occurrence: None)
  Receive Date: 20080214
  Receipt Date: 20080131
  Transmission Date: 20080703
  Serious: Yes (Death)
  Sender: FDA-Public Use
  Company Number: CLOF-1000065

PATIENT
  Age: 9 Year
  Sex: Male

DRUGS (6)
  1. CLOFARABINE         (CLOFARABINE) SOLUTION FOR INFUSION [Suspect]
     Indication: ACUTE LYMPHOCYTIC LEUKAEMIA
     Dates: start: 20071114
  2. ETOPOSIDE [Suspect]
     Indication: ACUTE LYMPHOCYTIC LEUKAEMIA
     Dates: start: 20071114
  3. CYCLOPHOSPHAMIDE [Suspect]
     Indication: ACUTE LYMPHOCYTIC LEUKAEMIA
     Dates: start: 20071114
  4. TAZOCILLINE (PIPERACILLIN SODIUM, TAZOBACTAM SODIUM) [Concomitant]
  5. AMIKIN [Concomitant]
  6. VANCOMYCIN [Concomitant]

REACTIONS (14)
  - BLOOD CREATINE INCREASED [None]
  - BLOOD ELECTROLYTES ABNORMAL [None]
  - BLOOD POTASSIUM DECREASED [None]
  - BLOOD SODIUM INCREASED [None]
  - BLOOD UREA INCREASED [None]
  - BRAIN NEOPLASM MALIGNANT [None]
  - COMPUTERISED TOMOGRAM ABNORMAL [None]
  - CONVULSION [None]
  - DYSPNOEA [None]
  - ERYTHEMA [None]
  - GRAND MAL CONVULSION [None]
  - PANCREATITIS [None]
  - SOMNOLENCE [None]
  - TOXIC SKIN ERUPTION [None]
